FAERS Safety Report 23068736 (Version 2)
Quarter: 2023Q4

REPORT INFORMATION
  Report Type: Spontaneous
  Country: GB (occurrence: None)
  Receive Date: 20231016
  Receipt Date: 20231017
  Transmission Date: 20240110
  Serious: Yes (Other)
  Sender: FDA-Public Use
  Company Number: 2023A229177

PATIENT
  Age: 57 Year
  Sex: Male
  Weight: 80 kg

DRUGS (1)
  1. ESOMEPRAZOLE [Suspect]
     Active Substance: ESOMEPRAZOLE
     Indication: Gastrooesophageal reflux disease
     Route: 048

REACTIONS (2)
  - Fatigue [Not Recovered/Not Resolved]
  - Medication error [Unknown]
